FAERS Safety Report 5452885-8 (Version None)
Quarter: 2007Q3

REPORT INFORMATION
  Report Type: 
  Country: None (occurrence: None)
  Receive Date: 20070914
  Receipt Date: 20070911
  Transmission Date: 20080115
  Serious: Yes (Hospitalization)
  Sender: FDA-Public Use
  Company Number: A0680924A

PATIENT
  Age: 78 Year
  Sex: Female

DRUGS (13)
  1. ADVAIR DISKUS 100/50 [Suspect]
     Indication: CHRONIC OBSTRUCTIVE PULMONARY DISEASE
     Dosage: 1PUFF TWICE PER DAY
     Route: 055
  2. LIPITOR [Concomitant]
  3. LEVOXYL [Concomitant]
  4. PAROXETINE [Concomitant]
  5. POTASSIUM CHLORIDE [Concomitant]
  6. NEXIUM [Concomitant]
  7. CLONAZEPAM [Concomitant]
  8. WARFARIN SODIUM [Concomitant]
  9. FUROSEMIDE [Concomitant]
  10. PRIMIDONE [Concomitant]
  11. ISOSORBIDE DINITRATE [Concomitant]
  12. AMBIEN [Concomitant]
  13. DIGITEK [Concomitant]

REACTIONS (3)
  - DRUG ADMINISTRATION ERROR [None]
  - DYSPNOEA [None]
  - PULMONARY OEDEMA [None]
